FAERS Safety Report 23234692 (Version 1)
Quarter: 2023Q4

REPORT INFORMATION
  Report Type: Spontaneous
  Country: US (occurrence: US)
  Receive Date: 20231128
  Receipt Date: 20231128
  Transmission Date: 20240110
  Serious: Yes (Hospitalization, Other)
  Sender: FDA-Public Use
  Company Number: US-TORRENT-00013003

PATIENT
  Age: 64 Year
  Sex: Male

DRUGS (3)
  1. MOXIFLOXACIN [Suspect]
     Active Substance: MOXIFLOXACIN
     Indication: Scleral disorder
     Route: 048
  2. TOBRAMYCIN [Suspect]
     Active Substance: TOBRAMYCIN
     Indication: Conjunctivitis
     Dosage: UNKNOWN
     Route: 065
  3. VANCOMYCIN [Suspect]
     Active Substance: VANCOMYCIN
     Indication: Conjunctivitis
     Dosage: UNKNOWN
     Route: 061

REACTIONS (4)
  - Visual impairment [Recovered/Resolved]
  - Anterior chamber inflammation [Unknown]
  - Condition aggravated [Unknown]
  - Vitreous disorder [Unknown]
